FAERS Safety Report 6061600-9 (Version None)
Quarter: 2009Q1

REPORT INFORMATION
  Report Type: 
  Country: None (occurrence: None)
  Receive Date: 20090202
  Receipt Date: 20090128
  Transmission Date: 20090719
  Serious: Yes (Hospitalization)
  Sender: FDA-Public Use
  Company Number: A0718749A

PATIENT
  Age: 57 Year
  Sex: Female
  Weight: 89 kg

DRUGS (9)
  1. AVANDIA [Suspect]
     Dosage: 8MG PER DAY
     Dates: start: 20000603, end: 20070401
  2. AVANDAMET [Suspect]
     Dates: start: 20000603, end: 20070401
  3. AVANDARYL [Suspect]
     Dates: start: 20000603, end: 20070401
  4. DIABETA [Concomitant]
     Dates: start: 19930101
  5. GLYBURIDE [Concomitant]
  6. LIPITOR [Concomitant]
  7. SYNTHROID [Concomitant]
  8. ZESTRIL [Concomitant]
  9. METOPROLOL [Concomitant]

REACTIONS (4)
  - ACUTE MYOCARDIAL INFARCTION [None]
  - ANEURYSM [None]
  - CARDIAC FAILURE CONGESTIVE [None]
  - CORONARY ARTERY DISEASE [None]
